FAERS Safety Report 8907486 (Version 2)
Quarter: 2012Q4

REPORT INFORMATION
  Report Type: 
  Country: PE (occurrence: PE)
  Receive Date: 20121114
  Receipt Date: 20121121
  Transmission Date: 20130627
  Serious: Yes (Hospitalization)
  Sender: FDA-Public Use
  Company Number: PE-PFIZER INC-2012284067

PATIENT
  Age: 74 Year
  Sex: Male

DRUGS (3)
  1. CARDURA XL [Suspect]
     Indication: BENIGN PROSTATIC HYPERPLASIA
     Dosage: 4 mg, 1x/day
     Route: 048
     Dates: start: 2006, end: 20121004
  2. ASPIRINA [Concomitant]
     Dosage: UNK
     Route: 048
  3. ENALAPRIL [Concomitant]
     Dosage: UNK
     Route: 048

REACTIONS (1)
  - Prostatic disorder [Recovered/Resolved]
